FAERS Safety Report 9501538 (Version 1)
Quarter: 2013Q3

REPORT INFORMATION
  Report Type: Spontaneous
  Country: FI (occurrence: FI)
  Receive Date: 20130905
  Receipt Date: 20130905
  Transmission Date: 20140515
  Serious: Yes (Hospitalization, Other)
  Sender: FDA-Public Use
  Company Number: FI-BAYER-2013-106026

PATIENT
  Age: 38 Year
  Sex: Male

DRUGS (1)
  1. CIPROFLOXACIN [Suspect]
     Indication: TULARAEMIA

REACTIONS (4)
  - Guillain-Barre syndrome [Recovered/Resolved]
  - Rash [None]
  - Pneumonia bacterial [Recovered/Resolved]
  - Drug ineffective [None]
